FAERS Safety Report 23323977 (Version 2)
Quarter: 2023Q4

REPORT INFORMATION
  Report Type: Other
  Country: US (occurrence: US)
  Receive Date: 20231221
  Receipt Date: 20231221
  Transmission Date: 20240110
  Serious: Yes (Other)
  Sender: FDA-Public Use
  Company Number: US-ALVOGEN-2023092680

PATIENT
  Sex: Male

DRUGS (11)
  1. DOXORUBICIN [Suspect]
     Active Substance: DOXORUBICIN
     Indication: Plasma cell myeloma refractory
     Dosage: FROM DAY 1 TO 4
  2. DOXORUBICIN [Suspect]
     Active Substance: DOXORUBICIN
     Indication: Plasma cell myeloma refractory
     Dosage: LESS AGGRESSIVE CHEMOTHERAPY, SECOND CYCLE OF THERAPY
  3. DEXAMETHASONE [Suspect]
     Active Substance: DEXAMETHASONE
     Indication: Plasma cell myeloma refractory
     Dosage: FROM DAY 1 TO 4
  4. BORTEZOMIB [Suspect]
     Active Substance: BORTEZOMIB
     Indication: Plasma cell myeloma refractory
     Dosage: ON DAY 1 AND 4
  5. CISPLATIN [Suspect]
     Active Substance: CISPLATIN
     Indication: Plasma cell myeloma refractory
     Dosage: FROM DAY 1 TO 4
  6. CYCLOPHOSPHAMIDE [Suspect]
     Active Substance: CYCLOPHOSPHAMIDE
     Indication: Plasma cell myeloma refractory
     Dosage: FROM DAY 1 TO 4
  7. CYCLOPHOSPHAMIDE [Suspect]
     Active Substance: CYCLOPHOSPHAMIDE
     Indication: Plasma cell myeloma refractory
     Dosage: LESS AGGRESSIVE CHEMOTHERAPY, SECOND CYCLE OF THERAPY
  8. ETOPOSIDE [Suspect]
     Active Substance: ETOPOSIDE
     Indication: Plasma cell myeloma refractory
     Dosage: FROM DAY 1 TO 4
  9. ETOPOSIDE [Suspect]
     Active Substance: ETOPOSIDE
     Indication: Plasma cell myeloma refractory
     Dosage: LESS AGGRESSIVE CHEMOTHERAPY, SECOND CYCLE OF THERAPY
  10. PEGFILGRASTIM [Concomitant]
     Active Substance: PEGFILGRASTIM
     Indication: Plasma cell myeloma refractory
     Dosage: ON DAY 6
  11. PREDNISONE [Concomitant]
     Active Substance: PREDNISONE
     Indication: Plasma cell myeloma refractory
     Dosage: LESS AGGRESSIVE, SECOND CYCLE OF THERAPY

REACTIONS (6)
  - Staphylococcal bacteraemia [Unknown]
  - Neutropenic sepsis [Unknown]
  - Pancytopenia [Unknown]
  - Actinic keratosis [Recovered/Resolved]
  - Skin lesion inflammation [Recovered/Resolved]
  - Off label use [Unknown]
